FAERS Safety Report 7644198-0 (Version None)
Quarter: 2011Q3

REPORT INFORMATION
  Report Type: 
  Country: None (occurrence: None)
  Receive Date: 20110728
  Receipt Date: 20110728
  Transmission Date: 20111222
  Serious: Yes (Life-Threatening, Disabling, Other)
  Sender: FDA-Public Use
  Company Number: None

PATIENT
  Sex: Female
  Weight: 100.6985 kg

DRUGS (2)
  1. TRAZODONE HCL [Suspect]
     Dosage: PTSD - 1980 TO 2011 AND OTHER MENTAL PROBLEMS
  2. SEROQUEL [Suspect]
     Dosage: 1 1/2 EVERYNIGHT 100 MG PTSD - 2000 AND OTHER MENTAL PROBLEMS
     Dates: start: 20000101

REACTIONS (2)
  - PRODUCT QUALITY ISSUE [None]
  - MEDICAL DEVICE COMPLICATION [None]
